FAERS Safety Report 8297475-7 (Version None)
Quarter: 2012Q2

REPORT INFORMATION
  Report Type: 
  Country: None (occurrence: None)
  Receive Date: 20120419
  Receipt Date: 20120410
  Transmission Date: 20120825
  Serious: Yes (Hospitalization, Other)
  Sender: FDA-Public Use
  Company Number: PHHO2012GB005682

PATIENT
  Sex: Female

DRUGS (1)
  1. DICLOFENAC SODIUM [Suspect]

REACTIONS (5)
  - GASTROINTESTINAL INFLAMMATION [None]
  - ESSENTIAL HYPERTENSION [None]
  - IRON DEFICIENCY ANAEMIA [None]
  - TYPE 2 DIABETES MELLITUS [None]
  - PERIPHERAL VASCULAR DISORDER [None]
